FAERS Safety Report 23234172 (Version 1)
Quarter: 2023Q4

REPORT INFORMATION
  Report Type: Spontaneous
  Country: US (occurrence: US)
  Receive Date: 20231128
  Receipt Date: 20231128
  Transmission Date: 20240110
  Serious: No
  Sender: FDA-Public Use
  Company Number: US-drreddys-SPO/USA/23/0182762

PATIENT
  Age: 14 Year

DRUGS (1)
  1. ZENATANE [Suspect]
     Active Substance: ISOTRETINOIN
     Indication: Product used for unknown indication
     Dosage: RMA ISSUE DATE: 01 AUGUST 2023 11:45:44 AM, 28 AUGUST 2023 05:03:10 PM AND 26 SEPTEMBER 2023 10:35:0

REACTIONS (1)
  - Growth disorder [Unknown]
